FAERS Safety Report 5558808-5 (Version None)
Quarter: 2007Q4

REPORT INFORMATION
  Report Type: 
  Country: None (occurrence: None)
  Receive Date: 20071214
  Receipt Date: 20071203
  Transmission Date: 20080405
  Serious: Yes (Other)
  Sender: FDA-Public Use
  Company Number: US-PFIZER INC-2007103326

PATIENT
  Sex: Female
  Weight: 124.54 kg

DRUGS (1)
  1. CHANTIX [Suspect]
     Indication: SMOKING CESSATION THERAPY

REACTIONS (8)
  - AMNESIA [None]
  - ARTHRALGIA [None]
  - FEELING ABNORMAL [None]
  - LOSS OF CONSCIOUSNESS [None]
  - PAIN IN JAW [None]
  - ROAD TRAFFIC ACCIDENT [None]
  - SINUS DISORDER [None]
  - SPINAL FRACTURE [None]
